FAERS Safety Report 13936046 (Version 1)
Quarter: 2017Q3

REPORT INFORMATION
  Report Type: Spontaneous
  Country: US (occurrence: US)
  Receive Date: 20170905
  Receipt Date: 20170905
  Transmission Date: 20171127
  Serious: No
  Sender: FDA-Public Use
  Company Number: US-BAYER-2017-152146

PATIENT
  Sex: Male
  Weight: 50 kg

DRUGS (3)
  1. MIRAFIBER CAPLETS [Suspect]
     Active Substance: CITRIC ACID MONOHYDRATE\METHYLCELLULOSE
     Route: 065
  2. MIRALAX [Suspect]
     Active Substance: POLYETHYLENE GLYCOL 3350
     Dosage: UNK
     Route: 065
  3. BENEFIBER [Concomitant]
     Active Substance: STARCH, WHEAT

REACTIONS (4)
  - Product use issue [Unknown]
  - Inappropriate prescribing [Unknown]
  - Intercepted drug administration error [None]
  - Product use issue [Unknown]

NARRATIVE: CASE EVENT DATE: 20170807
